FAERS Safety Report 8628537 (Version 2)
Quarter: 2013Q2

REPORT INFORMATION
  Report Type: Spontaneous
  Country: GR (occurrence: GR)
  Receive Date: 20120621
  Receipt Date: 20130605
  Transmission Date: 20140414
  Serious: Yes (Other)
  Sender: FDA-Public Use
  Company Number: GR-GLAXOSMITHKLINE-B0809284A

PATIENT
  Age: 70 Year
  Sex: Male

DRUGS (5)
  1. OMACOR [Suspect]
     Indication: PRODUCT USED FOR UNKNOWN INDICATION
     Dosage: 1000MG PER DAY
     Route: 048
     Dates: end: 20120601
  2. OMACOR [Suspect]
     Indication: PRODUCT USED FOR UNKNOWN INDICATION
     Dosage: 1000MG PER DAY
     Route: 048
     Dates: start: 2012
  3. LIPITOR [Concomitant]
  4. TILDIEM [Concomitant]
  5. CO-RENITEC [Concomitant]

REACTIONS (2)
  - Benign prostatic hyperplasia [Unknown]
  - Haematuria [Recovered/Resolved]
